FAERS Safety Report 4389633-9 (Version None)
Quarter: 2004Q2

REPORT INFORMATION
  Report Type: 
  Country: None (occurrence: None)
  Receive Date: 20040629
  Receipt Date: 20030530
  Transmission Date: 20050107
  Serious: Yes (Death, Hospitalization)
  Sender: FDA-Public Use
  Company Number: NSADSS2003014241

PATIENT
  Age: 68 Year
  Sex: Male

DRUGS (20)
  1. DURAGESIC [Suspect]
     Dosage: 25 UG/HR, 1 IN 72 HOUR
     Dates: end: 20021026
  2. FUROSEMIDE [Concomitant]
  3. ALDACTONE [Concomitant]
  4. PEPCID [Concomitant]
  5. THEO-DUR (FAMOTIDINE) [Concomitant]
  6. THEO-DUR [Concomitant]
  7. POTASSIUM (POTASSIUM) [Concomitant]
  8. XANAX [Concomitant]
  9. ALBUTEROL [Concomitant]
  10. MUCOMYST [Concomitant]
  11. LEVOFLOXACIN [Concomitant]
  12. XOPENEX [Concomitant]
  13. HUMIBID (GUAIFENESIN) [Concomitant]
  14. PREDNISONE TAB [Concomitant]
  15. BUMEX [Concomitant]
  16. DECADRON [Concomitant]
  17. ATIVAN [Concomitant]
  18. ZAROXOLYN [Concomitant]
  19. DIFLUCAN [Concomitant]
  20. SCOPOLAMINE (HYOSCINE) [Concomitant]

REACTIONS (4)
  - BLOOD SODIUM DECREASED [None]
  - CONFUSIONAL STATE [None]
  - HYPOTENSION [None]
  - RESPIRATORY FAILURE [None]
